FAERS Safety Report 20667059 (Version 1)
Quarter: 2022Q2

REPORT INFORMATION
  Report Type: Spontaneous
  Country: US (occurrence: US)
  Receive Date: 20220404
  Receipt Date: 20220404
  Transmission Date: 20220721
  Serious: No
  Sender: FDA-Public Use
  Company Number: US-BRISTOL-MYERS SQUIBB COMPANY-2022-013804

PATIENT
  Age: 71 Year
  Sex: Male

DRUGS (7)
  1. REVLIMID [Suspect]
     Active Substance: LENALIDOMIDE
     Indication: Plasma cell myeloma
     Dosage: 1 CAPSULE BY MOUTH DAILY FOR 14 DAYS, THEN 7 DAYS OFF
     Route: 048
     Dates: start: 20211228
  2. DORZOLAMIDE SOL [Concomitant]
     Indication: Product used for unknown indication
     Route: 065
  3. DUTASTERIDE [Concomitant]
     Active Substance: DUTASTERIDE
     Indication: Product used for unknown indication
     Route: 065
  4. LATANOPROST SOL [Concomitant]
     Indication: Product used for unknown indication
     Route: 065
  5. LOSARTAN POT TAB 50MG [Concomitant]
     Indication: Product used for unknown indication
     Route: 065
  6. SHINGRIX INJ [Concomitant]
     Indication: Product used for unknown indication
     Dosage: 50/0.5ML
     Route: 065
  7. SPIRONOLACT TAB 25MG [Concomitant]
     Indication: Product used for unknown indication
     Dosage: 50/0.5ML
     Route: 065

REACTIONS (3)
  - Peripheral swelling [Unknown]
  - Fluid retention [Unknown]
  - Intentional product use issue [Unknown]
